FAERS Safety Report 7156346-X (Version None)
Quarter: 2010Q4

REPORT INFORMATION
  Report Type: 
  Country: None (occurrence: None)
  Receive Date: 20101214
  Receipt Date: 20101206
  Transmission Date: 20110411
  Serious: Yes (Other)
  Sender: FDA-Public Use
  Company Number: GB-PFIZER INC-2010165658

PATIENT
  Age: 71 Year
  Sex: Male

DRUGS (5)
  1. METHOTREXATE SODIUM [Suspect]
     Dosage: 20 MG, WEEKLY
     Route: 048
     Dates: start: 20100301
  2. SULFASALAZINE [Suspect]
     Dosage: 2 G, 1X/DAY
     Route: 048
     Dates: start: 20100301
  3. CITALOPRAM [Concomitant]
     Dosage: UNK
     Dates: end: 20100901
  4. LISINOPRIL [Concomitant]
     Dosage: 5 MG, 1X/DAY
     Route: 048
  5. PREDNISOLONE [Concomitant]

REACTIONS (1)
  - DYSPNOEA [None]
